FAERS Safety Report 18263072 (Version 1)
Quarter: 2020Q3

REPORT INFORMATION
  Report Type: Spontaneous
  Country: JP (occurrence: JP)
  Receive Date: 20200914
  Receipt Date: 20200914
  Transmission Date: 20201103
  Serious: Yes (Other)
  Sender: FDA-Public Use
  Company Number: JP-ANIPHARMA-2020-JP-000327

PATIENT
  Sex: Female

DRUGS (10)
  1. SORENTMIN (BROTIZOLAM) [Suspect]
     Active Substance: BROTIZOLAM
     Route: 048
  2. DIFENIDOL [Suspect]
     Active Substance: DIPHENIDOL
     Route: 048
  3. CANDESARTAN CILEXETIL. [Suspect]
     Active Substance: CANDESARTAN CILEXETIL
     Indication: PRODUCT USED FOR UNKNOWN INDICATION
     Route: 048
  4. STOMARCON [Suspect]
     Active Substance: FAMOTIDINE
     Route: 048
  5. KETOPROFEN. [Concomitant]
     Active Substance: KETOPROFEN
     Route: 050
  6. ROSUVASTATIN. [Suspect]
     Active Substance: ROSUVASTATIN
     Route: 048
  7. NOVORAPID [Concomitant]
     Active Substance: INSULIN ASPART
     Route: 065
  8. SODIUM GUALENATE [Concomitant]
     Active Substance: SODIUM GUALENATE
     Route: 048
  9. LANTUS [Concomitant]
     Active Substance: INSULIN GLARGINE
     Route: 065
  10. METFORMIN+VILDAGLIPTIN [Concomitant]
     Route: 048

REACTIONS (1)
  - Hypoglycaemia [Unknown]
